FAERS Safety Report 11025878 (Version 1)
Quarter: 2015Q2

REPORT INFORMATION
  Report Type: Spontaneous
  Country: US (occurrence: None)
  Receive Date: 20150413
  Receipt Date: 20150413
  Transmission Date: 20150821
  Serious: Yes (Hospitalization)
  Sender: FDA-Public Use
  Company Number: None

PATIENT
  Age: 22 Year
  Sex: Male
  Weight: 70.3 kg

DRUGS (2)
  1. 5-FLUOROURACIL (5-FU) [Suspect]
     Active Substance: FLUOROURACIL
     Dates: end: 20150322
  2. CISPLATIN. [Suspect]
     Active Substance: CISPLATIN
     Dates: end: 20150318

REACTIONS (7)
  - Clostridium difficile infection [None]
  - Fatigue [None]
  - Dehydration [None]
  - Nausea [None]
  - Vomiting [None]
  - Asthenia [None]
  - Abdominal pain [None]

NARRATIVE: CASE EVENT DATE: 20150323
